FAERS Safety Report 13311869 (Version 1)
Quarter: 2017Q1

REPORT INFORMATION
  Report Type: Spontaneous
  Country: US (occurrence: US)
  Receive Date: 20170308
  Receipt Date: 20170308
  Transmission Date: 20170428
  Serious: Yes (Death)
  Sender: FDA-Public Use
  Company Number: None

PATIENT
  Age: 74 Year
  Sex: Female

DRUGS (1)
  1. REVLIMID [Suspect]
     Active Substance: LENALIDOMIDE
     Indication: PLASMA CELL MYELOMA
     Route: 048
     Dates: start: 20150709

REACTIONS (7)
  - Septic shock [None]
  - Pneumonia [None]
  - Acute respiratory failure [None]
  - Liver function test abnormal [None]
  - Urinary incontinence [None]
  - Anal incontinence [None]
  - Confusional state [None]

NARRATIVE: CASE EVENT DATE: 20170220
